FAERS Safety Report 20766656 (Version 1)
Quarter: 2022Q2

REPORT INFORMATION
  Report Type: Spontaneous
  Country: US (occurrence: US)
  Receive Date: 20220428
  Receipt Date: 20220428
  Transmission Date: 20220721
  Serious: Yes (Hospitalization, Disabling, Other)
  Sender: FDA-Public Use
  Company Number: US-SANOFI-01077163

PATIENT
  Age: 69 Year
  Sex: Male

DRUGS (4)
  1. DUPIXENT [Suspect]
     Active Substance: DUPILUMAB
     Indication: Dermatitis atopic
     Dosage: 300 MG, QOW
     Dates: start: 20191107, end: 20210311
  2. METHOTREXATE [Concomitant]
     Active Substance: METHOTREXATE
     Indication: Rheumatoid arthritis
  3. PREDNISONE [Concomitant]
     Active Substance: PREDNISONE
  4. COVID-19 VACCINE [Concomitant]

REACTIONS (11)
  - Rheumatoid arthritis [Unknown]
  - Toxicity to various agents [Unknown]
  - Cerebrovascular accident [Unknown]
  - Psoriatic arthropathy [Unknown]
  - Eosinophilic granulomatosis with polyangiitis [Unknown]
  - Gait disturbance [Unknown]
  - Peroneal nerve palsy [Unknown]
  - White blood cell count increased [Unknown]
  - Pain [Unknown]
  - Inflammation [Unknown]
  - Arthralgia [Unknown]
